FAERS Safety Report 25680187 (Version 1)
Quarter: 2025Q3

REPORT INFORMATION
  Report Type: Report from Study
  Country: US (occurrence: US)
  Receive Date: 20250814
  Receipt Date: 20250814
  Transmission Date: 20251021
  Serious: Yes (Hospitalization, Other)
  Sender: SUNOVION
  Company Number: US-SUMITOMO PHARMA SWITZERLAND GMBH-2025SPA006137

PATIENT
  Age: 83 Year
  Sex: Male

DRUGS (11)
  1. ORGOVYX [Suspect]
     Active Substance: RELUGOLIX
     Indication: Prostate cancer
     Dosage: 360 MG, SINGLE (ON DAY 1)
     Route: 048
     Dates: start: 20250414, end: 20250414
  2. ORGOVYX [Suspect]
     Active Substance: RELUGOLIX
     Dosage: 120 MG, QD
     Route: 048
     Dates: start: 20250415
  3. HYDRALAZINE [Concomitant]
     Active Substance: HYDRALAZINE HYDROCHLORIDE
  4. LATANOPROST [Concomitant]
     Active Substance: LATANOPROST
     Route: 047
  5. VITAMINS [Concomitant]
     Active Substance: VITAMINS
  6. OXYBUTYNIN [Concomitant]
     Active Substance: OXYBUTYNIN
  7. STOOL SOFTENER (DOCUSATE) [Concomitant]
     Active Substance: DOCUSATE
  8. XTANDI [Concomitant]
     Active Substance: ENZALUTAMIDE
  9. AMLODIPINE BESYLATE [Concomitant]
     Active Substance: AMLODIPINE BESYLATE
  10. HYDRALAZINE HCL [Concomitant]
     Active Substance: HYDRALAZINE HYDROCHLORIDE
  11. METOPROLOL SUCCINATE [Concomitant]
     Active Substance: METOPROLOL SUCCINATE

REACTIONS (7)
  - Small intestinal obstruction [Unknown]
  - Enterorrhaphy [Unknown]
  - Road traffic accident [Unknown]
  - Pain [Unknown]
  - Increased appetite [Unknown]
  - General physical health deterioration [Unknown]
  - Asthenia [Not Recovered/Not Resolved]
